FAERS Safety Report 9115973 (Version 1)
Quarter: 2013Q1

REPORT INFORMATION
  Report Type: Spontaneous
  Country: US (occurrence: US)
  Receive Date: 20130225
  Receipt Date: 20130225
  Transmission Date: 20140127
  Serious: No
  Sender: FDA-Public Use
  Company Number: US-BAYER-2013-023525

PATIENT
  Sex: Female
  Weight: 99.77 kg

DRUGS (4)
  1. BETASERON [Suspect]
     Dosage: 0.3 MG, QOD
     Route: 058
  2. LEVOTHYROXINE [Concomitant]
     Dosage: 75 ?G, UNK
  3. VITAMIN D [Concomitant]
     Dosage: 1000 IU, UNK
  4. VITAMIN C [Concomitant]
     Dosage: 500 MG, UNK

REACTIONS (1)
  - Thyroid function test abnormal [Unknown]
